FAERS Safety Report 26005696 (Version 1)
Quarter: 2025Q4

REPORT INFORMATION
  Report Type: Spontaneous
  Country: CN (occurrence: CN)
  Receive Date: 20251106
  Receipt Date: 20251106
  Transmission Date: 20260118
  Serious: Yes (Other)
  Sender: BAXTER
  Company Number: None

PATIENT
  Age: 54 Year
  Sex: Female
  Weight: 62 kg

DRUGS (4)
  1. CYCLOPHOSPHAMIDE [Suspect]
     Active Substance: CYCLOPHOSPHAMIDE
     Indication: Breast cancer female
     Dosage: 1 G, QD, ST (WITH NS100ML)
     Route: 041
     Dates: start: 20251019, end: 20251019
  2. SODIUM CHLORIDE [Suspect]
     Active Substance: SODIUM CHLORIDE
     Dosage: 100 ML, QD, ST (NS100ML WITH CYCLOPHOSPHAMIDE 1G)
     Route: 041
     Dates: start: 20251019, end: 20251019
  3. DEXTROSE [Suspect]
     Active Substance: DEXTROSE MONOHYDRATE
     Dosage: 500 ML, QD, ST (WITH LI PU SU/PACLITAXEL LIPOSOME 270MG), FORMULATION: INJECTION
     Route: 041
     Dates: start: 20251019, end: 20251019
  4. PACLITAXEL [Suspect]
     Active Substance: PACLITAXEL
     Indication: Breast cancer female
     Dosage: 270 MG, QD, ST (WITH 5% GLUCOSE INJECTION 500ML)
     Route: 041
     Dates: start: 20251019, end: 20251019

REACTIONS (2)
  - Myelosuppression [Recovering/Resolving]
  - White blood cell count decreased [Recovering/Resolving]

NARRATIVE: CASE EVENT DATE: 20251025
